FAERS Safety Report 18185902 (Version 7)
Quarter: 2021Q4

REPORT INFORMATION
  Report Type: Other
  Country: CA (occurrence: None)
  Receive Date: 20200824
  Receipt Date: 20211129
  Transmission Date: 20220303
  Serious: Yes (Other)
  Sender: FDA-Public Use
  Company Number: CA-ROCHE-2522413

PATIENT
  Sex: Male
  Weight: 86.6 kg

DRUGS (20)
  1. ESBRIET [Suspect]
     Active Substance: PIRFENIDONE
     Indication: Idiopathic pulmonary fibrosis
     Route: 048
     Dates: start: 20200409, end: 202005
  2. ESBRIET [Suspect]
     Active Substance: PIRFENIDONE
     Route: 048
     Dates: start: 20200601, end: 2020
  3. ESBRIET [Suspect]
     Active Substance: PIRFENIDONE
     Dosage: 267 MG X 7 TAB
     Route: 048
     Dates: start: 202007, end: 202007
  4. ESBRIET [Suspect]
     Active Substance: PIRFENIDONE
     Dosage: 267 MG X 6 TAB/ PER DAY
     Route: 048
     Dates: start: 202007, end: 202008
  5. ESBRIET [Suspect]
     Active Substance: PIRFENIDONE
     Dosage: 267 MG X 7 TAB/ PER DAY?ON SUSPENSION
     Route: 048
     Dates: start: 20200810, end: 2020
  6. ESBRIET [Suspect]
     Active Substance: PIRFENIDONE
     Route: 048
     Dates: start: 20201112
  7. ESBRIET [Suspect]
     Active Substance: PIRFENIDONE
     Indication: Idiopathic pulmonary fibrosis
     Route: 048
     Dates: start: 20191107, end: 2019
  8. ESBRIET [Suspect]
     Active Substance: PIRFENIDONE
     Route: 048
     Dates: start: 2019, end: 2019
  9. ESBRIET [Suspect]
     Active Substance: PIRFENIDONE
     Route: 048
     Dates: start: 2019, end: 202003
  10. ESBRIET [Suspect]
     Active Substance: PIRFENIDONE
     Dosage: TREATMENT SUSPENDED
     Route: 048
     Dates: start: 202003, end: 202004
  11. ESBRIET [Suspect]
     Active Substance: PIRFENIDONE
     Route: 048
     Dates: start: 202005, end: 202005
  12. MORPHINE [Suspect]
     Active Substance: MORPHINE
     Indication: Back pain
     Route: 065
  13. RAMIPRIL [Concomitant]
     Active Substance: RAMIPRIL
  14. ASPIRIN [Concomitant]
     Active Substance: ASPIRIN
  15. CITALOPRAM [Concomitant]
     Active Substance: CITALOPRAM HYDROBROMIDE
  16. GLICLAZIDE [Concomitant]
     Active Substance: GLICLAZIDE
  17. METOPROLOL [Concomitant]
     Active Substance: METOPROLOL
  18. PANTOPRAZOLE [Concomitant]
     Active Substance: PANTOPRAZOLE
  19. ROSUVASTATIN [Concomitant]
     Active Substance: ROSUVASTATIN
  20. METFORMIN [Concomitant]
     Active Substance: METFORMIN HYDROCHLORIDE

REACTIONS (15)
  - Pneumonia [Unknown]
  - Diarrhoea [Unknown]
  - Fatigue [Unknown]
  - Muscle strain [Unknown]
  - Constipation [Recovered/Resolved]
  - Nausea [Unknown]
  - Abdominal discomfort [Unknown]
  - Flatulence [Unknown]
  - Cough [Unknown]
  - Weight decreased [Not Recovered/Not Resolved]
  - Hypoacusis [Unknown]
  - Pyrexia [Unknown]
  - Vomiting [Unknown]
  - Decreased appetite [Unknown]
  - Dyspepsia [Unknown]

NARRATIVE: CASE EVENT DATE: 20200101
